FAERS Safety Report 7148973-0 (Version None)
Quarter: 2010Q4

REPORT INFORMATION
  Report Type: 
  Country: None (occurrence: None)
  Receive Date: 20101209
  Receipt Date: 20101029
  Transmission Date: 20110411
  Serious: Yes (Hospitalization)
  Sender: FDA-Public Use
  Company Number: IR-B.I. PHARMACEUTICALS,INC./RIDGEFIELD-2010-CS-00906AE

PATIENT
  Age: 47 Year
  Sex: Female
  Weight: 75 kg

DRUGS (2)
  1. SIFROL [Suspect]
     Indication: RESTLESS LEGS SYNDROME
     Dosage: 0.18 MG Q.D.S
     Route: 048
     Dates: start: 20060101, end: 20100101
  2. PLAVIX [Suspect]
     Indication: ANGIOGRAM
     Dosage: ONLY 4 TABLETS ON 9OCT2010
     Route: 048
     Dates: start: 20101009, end: 20101009

REACTIONS (3)
  - CHEST PAIN [None]
  - EPISTAXIS [None]
  - PUNCTURE SITE HAEMORRHAGE [None]
